FAERS Safety Report 8650285 (Version 2)
Quarter: 2012Q4

REPORT INFORMATION
  Report Type: 
  Country: US (occurrence: US)
  Receive Date: 20120705
  Receipt Date: 20121108
  Transmission Date: 20130627
  Serious: Yes (Hospitalization, Other)
  Sender: FDA-Public Use
  Company Number: US-PFIZER INC-2012158128

PATIENT
  Age: 72 Year
  Sex: Male

DRUGS (1)
  1. CHANTIX [Suspect]
     Indication: SMOKING CESSATION THERAPY
     Dosage: starter pack then continuing pack
     Dates: start: 20090415, end: 20091208

REACTIONS (2)
  - Convulsion [Not Recovered/Not Resolved]
  - Depression [Not Recovered/Not Resolved]
